FAERS Safety Report 23553841 (Version 7)
Quarter: 2024Q3

REPORT INFORMATION
  Report Type: Spontaneous
  Country: US (occurrence: US)
  Receive Date: 20240222
  Receipt Date: 20240903
  Transmission Date: 20241016
  Serious: Yes (Other)
  Sender: PFIZER
  Company Number: US-PFIZER INC-PV202400024282

PATIENT
  Age: 73 Year
  Sex: Male
  Weight: 101.13 kg

DRUGS (31)
  1. BRAFTOVI [Suspect]
     Active Substance: ENCORAFENIB
     Indication: Metastatic malignant melanoma
     Dosage: 450 MG, 1X/DAY
     Route: 048
     Dates: start: 202008
  2. BRAFTOVI [Suspect]
     Active Substance: ENCORAFENIB
     Indication: Iron deficiency anaemia
     Dosage: 450 MG, DAILY
     Dates: start: 202011, end: 202012
  3. BRAFTOVI [Suspect]
     Active Substance: ENCORAFENIB
     Indication: Restless legs syndrome
     Dosage: UNK
     Dates: start: 202101
  4. BRAFTOVI [Suspect]
     Active Substance: ENCORAFENIB
     Indication: Metastases to central nervous system
     Dosage: 450 MG, 1X/DAY
     Route: 048
     Dates: start: 202102
  5. BRAFTOVI [Suspect]
     Active Substance: ENCORAFENIB
     Dosage: 450 MG, DAILY
     Route: 048
  6. BINIMETINIB [Concomitant]
     Active Substance: BINIMETINIB
     Dosage: UNK
     Dates: start: 202008
  7. CELEBREX [Concomitant]
     Active Substance: CELECOXIB
     Indication: Back pain
     Dosage: 200 MG, AS NEEDED (1 CAP TWICE DAILY AS NEEDED. TAKE WITH FOOD)
     Route: 048
  8. CELEBREX [Concomitant]
     Active Substance: CELECOXIB
     Indication: Pain in extremity
  9. COZAAR [Concomitant]
     Active Substance: LOSARTAN POTASSIUM
     Dosage: TAKE 1 CAP BY MOUTH ONCE PER DAY
     Route: 048
  10. D3 5000 [Concomitant]
     Dosage: TAKE 1 CAP BY MOUTH ONCE PER DAY
     Route: 048
  11. DILAUDID [Concomitant]
     Active Substance: HYDROMORPHONE HYDROCHLORIDE
     Dosage: 2 MG, AS NEEDED (TAKE 1 TAB BY MOUTH EVERY 6 HOURS AS NEEDED. MAX DAILY AMOUNT: 8 MG)
     Route: 048
  12. FERROUS SULFATE [Concomitant]
     Active Substance: FERROUS SULFATE
     Dosage: TAKE 1 TAB BY MOUTH ONCE PER DAY
     Route: 048
  13. GLUCOTROL [Concomitant]
     Active Substance: GLIPIZIDE
     Dosage: TAKE 1 TAB BY MOUTH ONCE PER DAY
     Route: 048
  14. HUMALOG [Concomitant]
     Active Substance: INSULIN LISPRO
     Dosage: 200 IU/ML (USE 7 UNITS BEFORE EACH MEAL)
     Route: 058
  15. INSULIN LISPRO [Concomitant]
     Active Substance: INSULIN LISPRO
     Dosage: USE 7 UNITS BEFORE EACH MEAL
  16. JANUMET [Concomitant]
     Active Substance: METFORMIN HYDROCHLORIDE\SITAGLIPTIN PHOSPHATE
     Dosage: 1 DF, 2X/DAY (TAKE 1 TAB BY MOUTH TWO TIMES PER DAY WITH MEALS))
     Route: 048
  17. LANTUS [Concomitant]
     Active Substance: INSULIN GLARGINE
     Dosage: INJECT 45 UNITS SUBCUTANEOUS EVERY NIGHT AT BEDTIME
     Route: 058
  18. LEVETIRACETAM [Concomitant]
     Active Substance: LEVETIRACETAM
     Dosage: 1000 MG, 2X/DAY
     Route: 048
  19. LIDOCAINE [Concomitant]
     Active Substance: LIDOCAINE
     Dosage: PLACE 1 APPLICATION TOPICALLY ONCE DAILY AS NEEDED. APPLY TO BOTH FEET.
     Route: 061
  20. LOPID [Concomitant]
     Active Substance: GEMFIBROZIL
     Dosage: 600 MG, 2X/DAY (TAB 1 TABLET BY MOUTH TWO TIMES PER DAY BEFORE MEALS)
     Route: 048
  21. LORAZEPAM [Concomitant]
     Active Substance: LORAZEPAM
     Dosage: 1 MG (TAKE 1 TAB BY MOUTH AS DIRECTED)
     Route: 048
  22. NALOXONE HCL [Concomitant]
     Active Substance: NALOXONE HYDROCHLORIDE
     Indication: Drug use disorder
     Dosage: UNK, AS NEEDED (1 SPRAY AS NEEDED)
     Route: 045
  23. NEURONTIN [Concomitant]
     Active Substance: GABAPENTIN
     Dosage: TAKE 4 CAPS (CAPSULES) BY MOUTH EVERY NIGHT AT BEDTIME
     Route: 048
  24. NORCO [Concomitant]
     Active Substance: ACETAMINOPHEN\HYDROCODONE BITARTRATE
     Indication: Pain
     Dosage: 1 DF, AS NEEDED (TAKE 1 TAB BY MOUTH EVERY 6 HOURS AS NEEDED. MAX DAILY AMOUNT: 4 TABS)
     Route: 048
  25. NOVOLOG [Concomitant]
     Active Substance: INSULIN ASPART
     Dosage: 200-249 = 1 UNIT (INJECT 3 UNITS WITH EACH MEAL)
     Route: 058
  26. NOVOLOG [Concomitant]
     Active Substance: INSULIN ASPART
     Dosage: 250-299 = 3 UNITS (INJECT 3 UNITS WITH EACH MEAL)
     Route: 058
  27. NOVOLOG [Concomitant]
     Active Substance: INSULIN ASPART
     Dosage: 300-349 = 5 UNITS (INJECT 3 UNITS WITH EACH MEAL)
     Route: 058
  28. NOVOLOG [Concomitant]
     Active Substance: INSULIN ASPART
     Dosage: 350+ = 7 UNITS (INJECT 3 UNITS WITH EACH MEAL)
     Route: 058
  29. OMEPRAZOLE [Concomitant]
     Active Substance: OMEPRAZOLE
     Dosage: TAKE 1 CAP BY MOUTH ONCE PER DAY
     Route: 048
  30. PRAMIPEXOLE [Concomitant]
     Active Substance: PRAMIPEXOLE\PRAMIPEXOLE DIHYDROCHLORIDE
     Dosage: TAKE 5 TABS BY MOUTH EVERY NIGHT AT BEDTIME
     Route: 048
  31. SENOKOT-S [Concomitant]
     Active Substance: DOCUSATE SODIUM\SENNOSIDES
     Indication: Constipation
     Dosage: TAKE 1 TAB BY MOUTH ONCE DAILY AS NEEDED.
     Route: 048

REACTIONS (18)
  - Brain operation [Unknown]
  - Tumour pseudoprogression [Unknown]
  - Diarrhoea [Recovered/Resolved]
  - Vasogenic cerebral oedema [Unknown]
  - Cerebral thrombosis [Unknown]
  - Cerebral haemorrhage [Unknown]
  - Hypoacusis [Unknown]
  - Headache [Unknown]
  - Aphasia [Unknown]
  - Gliosis [Unknown]
  - Condition aggravated [Unknown]
  - Red blood cell count decreased [Unknown]
  - Haemoglobin decreased [Unknown]
  - Haematocrit decreased [Unknown]
  - Monocyte count increased [Unknown]
  - Blood glucose increased [Unknown]
  - Blood urea increased [Unknown]
  - Rash [Unknown]

NARRATIVE: CASE EVENT DATE: 20210801
